FAERS Safety Report 11148277 (Version 6)
Quarter: 2020Q3

REPORT INFORMATION
  Report Type: Spontaneous
  Country: US (occurrence: US)
  Receive Date: 20150529
  Receipt Date: 20200730
  Transmission Date: 20201102
  Serious: Yes (Other)
  Sender: FDA-Public Use
  Company Number: US-PFIZER INC-2015175701

PATIENT
  Age: 58 Year
  Sex: Female
  Weight: 59 kg

DRUGS (3)
  1. LYRICA [Suspect]
     Active Substance: PREGABALIN
     Indication: FIBROMYALGIA
     Dosage: 75 MG, 2X/DAY
     Dates: start: 2008
  2. LYRICA [Suspect]
     Active Substance: PREGABALIN
     Dosage: 75 MG, 3X/DAY
     Route: 048
  3. LYRICA [Suspect]
     Active Substance: PREGABALIN
     Dosage: 1 DF, DAILY

REACTIONS (12)
  - Pain [Unknown]
  - Sensory disturbance [Unknown]
  - Bone pain [Unknown]
  - Fatigue [Unknown]
  - Insomnia [Unknown]
  - Weight increased [Unknown]
  - Ear disorder [Unknown]
  - Somnolence [Unknown]
  - Neuralgia [Unknown]
  - Intentional product use issue [Unknown]
  - Nerve injury [Unknown]
  - Arthralgia [Not Recovered/Not Resolved]

NARRATIVE: CASE EVENT DATE: 2013
